FAERS Safety Report 20999115 (Version 1)
Quarter: 2022Q2

REPORT INFORMATION
  Report Type: Spontaneous
  Country: US (occurrence: US)
  Receive Date: 20220623
  Receipt Date: 20220623
  Transmission Date: 20220721
  Serious: No
  Sender: FDA-Public Use
  Company Number: US-BioHaven Pharmaceuticals-2022BHV000638

PATIENT
  Age: 28 Year
  Sex: Female
  Weight: 77.180 kg

DRUGS (1)
  1. NURTEC ODT [Suspect]
     Active Substance: RIMEGEPANT SULFATE
     Indication: Prophylaxis
     Dosage: 1 TABLET
     Route: 048
     Dates: start: 20210929

REACTIONS (3)
  - Product communication issue [Unknown]
  - Therapeutic product effect variable [Unknown]
  - COVID-19 [Recovered/Resolved]

NARRATIVE: CASE EVENT DATE: 20220101
